APPROVED DRUG PRODUCT: INDOCIN
Active Ingredient: INDOMETHACIN SODIUM
Strength: EQ 1MG BASE/VIAL **Federal Register determination that product was not discontinued or withdrawn for safety or effectiveness reasons**
Dosage Form/Route: INJECTABLE;INJECTION
Application: N018878 | Product #001
Applicant: RECORDATI RARE DISEASES INC
Approved: Jan 30, 1985 | RLD: Yes | RS: No | Type: DISCN